FAERS Safety Report 4948066-4 (Version None)
Quarter: 2006Q1

REPORT INFORMATION
  Report Type: 
  Country: None (occurrence: None)
  Receive Date: 20060320
  Receipt Date: 20060308
  Transmission Date: 20060701
  Serious: Yes (Hospitalization)
  Sender: FDA-Public Use
  Company Number: FR-JNJFOC-20050102901

PATIENT
  Age: 34 Year
  Sex: Male

DRUGS (2)
  1. INFLIXIMAB [Suspect]
     Indication: CROHN'S DISEASE
     Dosage: 2 INFUSIONS
     Route: 042
  2. AZATHIOPRINE [Concomitant]

REACTIONS (5)
  - EPILEPSY [None]
  - LISTERIA ENCEPHALITIS [None]
  - LISTERIA SEPSIS [None]
  - MEMORY IMPAIRMENT [None]
  - MENINGITIS LISTERIA [None]
